FAERS Safety Report 9208218 (Version 1)
Quarter: 2013Q2

REPORT INFORMATION
  Report Type: Report from Study
  Country: US (occurrence: US)
  Receive Date: 20130403
  Receipt Date: 20130403
  Transmission Date: 20140414
  Serious: Yes (Hospitalization, Other)
  Sender: FDA-Public Use
  Company Number: US-US-EMD SERONO, INC.-7202326

PATIENT
  Sex: Female

DRUGS (3)
  1. REBIF [Suspect]
     Indication: MULTIPLE SCLEROSIS
     Route: 058
     Dates: start: 20070222
  2. REBIF [Suspect]
     Dates: end: 201302
  3. VICODIN [Concomitant]
     Indication: PRODUCT USED FOR UNKNOWN INDICATION

REACTIONS (9)
  - Pneumonia [Unknown]
  - Cardiac failure congestive [Unknown]
  - Cataract [Unknown]
  - Loss of consciousness [Unknown]
  - Fatigue [Unknown]
  - Memory impairment [Unknown]
  - Hypokalaemia [Unknown]
  - Malaise [Unknown]
  - Depression [Unknown]
